FAERS Safety Report 14146013 (Version 2)
Quarter: 2017Q4

REPORT INFORMATION
  Report Type: Report from Study
  Country: AU (occurrence: AU)
  Receive Date: 20171031
  Receipt Date: 20171120
  Transmission Date: 20180321
  Serious: Yes (Other)
  Sender: FDA-Public Use
  Company Number: AU-JNJFOC-20171031266

PATIENT
  Sex: Female

DRUGS (2)
  1. REMICADE [Suspect]
     Active Substance: INFLIXIMAB
     Indication: CROHN^S DISEASE
     Route: 042
  2. REMICADE [Suspect]
     Active Substance: INFLIXIMAB
     Indication: CROHN^S DISEASE
     Route: 042
     Dates: start: 201710

REACTIONS (4)
  - Lupus-like syndrome [Unknown]
  - Inappropriate schedule of drug administration [Unknown]
  - Tonsillitis [Unknown]
  - Guttate psoriasis [Not Recovered/Not Resolved]

NARRATIVE: CASE EVENT DATE: 2016
